FAERS Safety Report 7949066-2 (Version None)
Quarter: 2011Q4

REPORT INFORMATION
  Report Type: 
  Country: None (occurrence: None)
  Receive Date: 20111130
  Receipt Date: 20111007
  Transmission Date: 20120403
  Serious: No
  Sender: FDA-Public Use
  Company Number: US-BRISTOL-MYERS SQUIBB COMPANY-16055931

PATIENT
  Age: 3 Decade
  Sex: Male

DRUGS (1)
  1. KOMBIGLYZE XR [Suspect]
     Dosage: 2.5/1000 MG TABS

REACTIONS (1)
  - MEDICATION RESIDUE [None]
